FAERS Safety Report 17277614 (Version 5)
Quarter: 2020Q2

REPORT INFORMATION
  Report Type: Report from Study
  Country: BR (occurrence: BR)
  Receive Date: 20200116
  Receipt Date: 20200416
  Transmission Date: 20200713
  Serious: Yes (Death, Hospitalization)
  Sender: FDA-Public Use
  Company Number: NVSC2020BR007783

PATIENT
  Age: 55 Year
  Sex: Female
  Weight: 65 kg

DRUGS (4)
  1. BYL719 [Suspect]
     Active Substance: ALPELISIB
     Dosage: 300 MG, QD
     Route: 048
     Dates: start: 20191209, end: 20200105
  2. BYL719 [Suspect]
     Active Substance: ALPELISIB
     Dosage: 300 MG, QD
     Route: 048
     Dates: start: 20200110, end: 20200302
  3. DEXAMETHASONE. [Suspect]
     Active Substance: DEXAMETHASONE
     Indication: BONE PAIN
     Dosage: 4 MG, QD
     Route: 065
     Dates: start: 20191229, end: 20200104
  4. BYL719 [Suspect]
     Active Substance: ALPELISIB
     Indication: BREAST CANCER
     Dosage: 300 MG, QD
     Route: 048
     Dates: start: 20191209, end: 20200105

REACTIONS (6)
  - Hyperglycaemia [Recovering/Resolving]
  - Breast cancer [Fatal]
  - Malignant neoplasm progression [Fatal]
  - Pleural effusion [Fatal]
  - Metastases to lymph nodes [Fatal]
  - Metastases to peritoneum [Fatal]

NARRATIVE: CASE EVENT DATE: 20200103
